FAERS Safety Report 10304768 (Version 1)
Quarter: 2014Q3

REPORT INFORMATION
  Report Type: Spontaneous
  Country: US (occurrence: None)
  Receive Date: 20140710
  Receipt Date: 20140710
  Transmission Date: 20150326
  Serious: Yes (Other)
  Sender: FDA-Public Use
  Company Number: SYM-2014-22911

PATIENT
  Age: 60 Year
  Sex: Male
  Weight: 91.63 kg

DRUGS (19)
  1. BACLOFEN (BACLOFEN) (BACLOFEN) [Concomitant]
     Active Substance: BACLOFEN
  2. LEVEMIR [Concomitant]
     Active Substance: INSULIN DETEMIR
  3. NOVOLOG [Concomitant]
     Active Substance: INSULIN ASPART
  4. LEXAPRO (ESCITALOPRAM OXALATE) (ESCITALOPRAM OXALATE) [Concomitant]
  5. PEPCID (FAMOTIDINE) (FAMOTIDINE) [Concomitant]
  6. NEURONTIN (GABAPENTIN) (GABAPENTIN) [Concomitant]
  7. TRAZODOINE (TRAZODONE) [Concomitant]
  8. ASPIRIN (ACETYLSALICYLIC ACID) 9ACETYLSALICYLIC ACID) [Concomitant]
  9. COGENTIN (BENZATROPINE MESILATE) (BENZATROPINE MESILATE) [Concomitant]
  10. PLAVIX (CLOPIDDOGREL BISULFATE) (CLOPIDOGREL BISULFATE) [Concomitant]
  11. XENAZINE [Suspect]
     Active Substance: TETRABENAZINE
     Indication: PARKINSONISM
     Dosage: HALF-TABLET 3 TIMES DAILY, ORAL
     Route: 048
     Dates: start: 20140627
  12. NORVASC (AMLODIPINE BESILATE) (AMLODIPINE BESILATE) [Concomitant]
  13. ATORVASTATIN (ATORVASTATIN) [Concomitant]
     Active Substance: ATORVASTATIN
  14. FLOMAX (MORNIFLUMATE) (MORNIFLUMATE) [Concomitant]
  15. NASONEX (MOMETASONE FUROATE) (MOMETASONE FUROATE) [Concomitant]
  16. VITAMIN D (ERGOCALCIFEROL) (ERGOCALCIFEROL) [Concomitant]
  17. KEPPRA (LEVETIRACETAM) (LEVETIRACETAM) [Concomitant]
  18. TOPROL (METOPROLOL SUCCINATE) (METOPROLOL SUCCINATE) [Concomitant]
  19. EFFEXOR XR (VALAFAXINE HYDROCHLORIDE) (VENLAFAXINE HYDROCHLORIDE) [Concomitant]

REACTIONS (8)
  - Coma [None]
  - Confusional state [None]
  - Screaming [None]
  - Disorientation [None]
  - Somnolence [None]
  - Speech disorder [None]
  - Muscle twitching [None]
  - Hallucination, visual [None]

NARRATIVE: CASE EVENT DATE: 20140630
